FAERS Safety Report 17098084 (Version 1)
Quarter: 2019Q4

REPORT INFORMATION
  Report Type: Spontaneous
  Country: BR (occurrence: BR)
  Receive Date: 20191202
  Receipt Date: 20191202
  Transmission Date: 20200122
  Serious: Yes (Other)
  Sender: FDA-Public Use
  Company Number: BR-PFIZER INC-2015237813

PATIENT
  Age: 51 Year
  Sex: Male
  Weight: 110 kg

DRUGS (5)
  1. FRONTAL XR [Suspect]
     Active Substance: ALPRAZOLAM
     Indication: DEPRESSION
     Dosage: 1 TO 2 TABLETS PER DAY
     Route: 048
     Dates: start: 2008
  2. CITALOPRAM [Concomitant]
     Active Substance: CITALOPRAM HYDROBROMIDE
     Indication: DEPRESSION
     Dosage: 1 TABLET IN THE MORNING AND 1 TABLET AT NIGHT
     Dates: start: 2003
  3. CITALOPRAM [Concomitant]
     Active Substance: CITALOPRAM HYDROBROMIDE
     Dosage: 200 MG, 2X/DAY: IN THE MORNING AFTER BREAKFAST AND AT 10:00 P.M.
  4. FENOFIBRATE. [Concomitant]
     Active Substance: FENOFIBRATE
     Indication: BLOOD TRIGLYCERIDES
     Dosage: UNK
  5. FRONTAL XR [Suspect]
     Active Substance: ALPRAZOLAM
     Indication: PANIC DISORDER

REACTIONS (12)
  - Thinking abnormal [Unknown]
  - Eye swelling [Unknown]
  - Nightmare [Unknown]
  - Mental impairment [Unknown]
  - Paranoia [Unknown]
  - Lacrimation increased [Unknown]
  - Feeling abnormal [Unknown]
  - Balance disorder [Unknown]
  - Impaired work ability [Unknown]
  - Insomnia [Unknown]
  - Drug dependence [Not Recovered/Not Resolved]
  - Anxiety [Unknown]

NARRATIVE: CASE EVENT DATE: 2008
